FAERS Safety Report 7375125-1 (Version None)
Quarter: 2011Q1

REPORT INFORMATION
  Report Type: 
  Country: None (occurrence: None)
  Receive Date: 20110325
  Receipt Date: 20110318
  Transmission Date: 20110831
  Serious: Yes (Hospitalization, Disabling)
  Sender: FDA-Public Use
  Company Number: GB-ROCHE-640329

PATIENT
  Sex: Female
  Weight: 68 kg

DRUGS (18)
  1. BENDROFLUMETHIAZIDE [Concomitant]
     Route: 048
  2. PACLITAXEL [Suspect]
     Dosage: THE PATIENT RECEIVED MEDICATIONS UNTIL CYCLE 18- 26 AUGUST 2008.
     Route: 042
     Dates: start: 20080129
  3. NIFEDIPINE [Concomitant]
     Route: 048
     Dates: end: 20090710
  4. BENDROFLUMETHIAZIDE [Concomitant]
     Route: 048
     Dates: start: 20080804, end: 20090707
  5. PREDNISOLONE [Concomitant]
     Route: 048
     Dates: start: 20090427
  6. ASCORBIC ACID [Concomitant]
  7. BETAHISTINE [Concomitant]
     Route: 048
     Dates: start: 20080428, end: 20090120
  8. BETAHISTINE [Concomitant]
     Route: 048
  9. CARBOPLATIN [Suspect]
     Dosage: THE PATIENT RECEIVED MEDICATIONS UNTIL CYCLE 18- 26 AUGUST 2008.
     Route: 042
     Dates: start: 20080129
  10. ATENOLOL [Suspect]
     Route: 048
     Dates: start: 20080826, end: 20090120
  11. VITAMIN D [Concomitant]
  12. PACLITAXEL [Suspect]
     Dosage: LAST DOSE PRIOR TO SAE: 29/01/2008
     Route: 042
     Dates: start: 20071012
  13. FAMOTIDINE [Concomitant]
     Route: 048
     Dates: end: 20090710
  14. CALCIUM [Concomitant]
     Route: 048
     Dates: start: 20090427
  15. PARACETAMOL [Concomitant]
     Route: 048
  16. BEVACIZUMAB [Suspect]
     Dosage: LAST DOSE PRIOR TO SAE: 29/01/2008
     Route: 042
     Dates: start: 20071010
  17. BEVACIZUMAB [Suspect]
     Dosage: THE PATIENT RECEIVED MEDICATIONS UNTIL CYCLE 18- 26 AUGUST 2008.
     Route: 042
     Dates: start: 20080826
  18. CARBOPLATIN [Suspect]
     Dosage: LAST DOSE PRIOR TO SAE; 26/AUG/2008
     Route: 042
     Dates: start: 20071012

REACTIONS (2)
  - MYOCARDIAL INFARCTION [None]
  - SCLERODERMA [None]
